FAERS Safety Report 24665606 (Version 1)
Quarter: 2024Q4

REPORT INFORMATION
  Report Type: Spontaneous
  Country: ES (occurrence: ES)
  Receive Date: 20241126
  Receipt Date: 20241126
  Transmission Date: 20250115
  Serious: Yes (Death)
  Sender: AMGEN
  Company Number: ES-AMGEN-ESPSP2024205919

PATIENT
  Age: 59 Year
  Sex: Male
  Weight: 82.5 kg

DRUGS (11)
  1. BEVACIZUMAB [Suspect]
     Active Substance: BEVACIZUMAB
     Indication: Hepatocellular carcinoma
     Dosage: 1155 MILLIGRAM, Q3WK
     Route: 040
     Dates: start: 20240229, end: 2024
  2. BEVACIZUMAB [Suspect]
     Active Substance: BEVACIZUMAB
     Dosage: 1230 MILLIGRAM
     Route: 040
     Dates: start: 20240523
  3. TIRAGOLUMAB [Suspect]
     Active Substance: TIRAGOLUMAB
     Indication: Hepatocellular carcinoma
     Dosage: UNK, Q3WK (ON 23-MAY-2024 HE RECEIVED THE MOST RECENT DOSE OF DRUG PRIOR TO AE)
     Route: 040
     Dates: start: 20240229
  4. ATEZOLIZUMAB [Suspect]
     Active Substance: ATEZOLIZUMAB
     Indication: Hepatocellular carcinoma
     Dosage: 1200 MILLIGRAM, Q3WK (ON 23-MAY-2024 HE RECEIVED THE MOST RECENT DOSE (1200 MG) OF DRUG PRIOR TO AE)
     Route: 040
     Dates: start: 20240229
  5. CARVEDILOL [Concomitant]
     Active Substance: CARVEDILOL
     Indication: Hypertension
     Dosage: 6.25 MILLIGRAM, BID
     Route: 048
     Dates: start: 20240212
  6. OMEPRAZOLE [Concomitant]
     Active Substance: OMEPRAZOLE
     Indication: Hypertension
     Dosage: 20 MILLIGRAM, BID, GIVEN FOR PROPHYLAXIS IS YES
     Route: 048
     Dates: start: 20240212, end: 20241105
  7. METFORMIN HYDROCHLORIDE [Concomitant]
     Active Substance: METFORMIN HYDROCHLORIDE
     Indication: Type 2 diabetes mellitus
     Dosage: 2000 MILLIGRAM, BID
     Route: 048
     Dates: start: 20240319, end: 20241105
  8. VILDAGLIPTIN [Concomitant]
     Active Substance: VILDAGLIPTIN
     Indication: Type 2 diabetes mellitus
     Dosage: 100 MILLIGRAM, BID
     Route: 048
     Dates: start: 20240319, end: 20241105
  9. ASPIRIN [Concomitant]
     Active Substance: ASPIRIN
     Dosage: 100 MILLIGRAM, QD (GIVEN FOR PROPHYLAXIS IS YES)
     Route: 048
     Dates: start: 20240319, end: 20241105
  10. AMLODIPINE BESYLATE [Concomitant]
     Active Substance: AMLODIPINE BESYLATE
     Dosage: 5 MILLIGRAM, QD (GIVEN FOR PROPHYLAXIS IS YES)
     Route: 048
     Dates: start: 20240409, end: 20241105
  11. ATORVASTATIN CALCIUM [Concomitant]
     Active Substance: ATORVASTATIN CALCIUM
     Dosage: 20 MILLIGRAM, QD (GIVEN FOR PROPHYLAXIS IS YES)
     Route: 048
     Dates: start: 20240409, end: 20240703

REACTIONS (3)
  - Death [Fatal]
  - Infusion related reaction [Recovered/Resolved]
  - Off label use [Unknown]

NARRATIVE: CASE EVENT DATE: 20240229
